FAERS Safety Report 7906668-7 (Version None)
Quarter: 2011Q4

REPORT INFORMATION
  Report Type: 
  Country: None (occurrence: None)
  Receive Date: 20111109
  Receipt Date: 20111109
  Transmission Date: 20120403
  Serious: No
  Sender: FDA-Public Use
  Company Number: None

PATIENT
  Sex: Male
  Weight: 93.441 kg

DRUGS (1)
  1. ABILIFY [Suspect]
     Indication: DEPRESSION
     Dosage: 1 - 5MG A DAY 1-A DAY ?   2-3 MONTHS?

REACTIONS (8)
  - FATIGUE [None]
  - POLLAKIURIA [None]
  - SALIVARY HYPERSECRETION [None]
  - CONFUSIONAL STATE [None]
  - MUSCULOSKELETAL STIFFNESS [None]
  - OEDEMA PERIPHERAL [None]
  - VISION BLURRED [None]
  - RESTLESSNESS [None]
